FAERS Safety Report 4498387-7 (Version None)
Quarter: 2004Q4

REPORT INFORMATION
  Report Type: 
  Country: None (occurrence: None)
  Receive Date: 20041105
  Receipt Date: 20041026
  Transmission Date: 20050328
  Serious: Yes (Other)
  Sender: FDA-Public Use
  Company Number: 2004-10-1985

PATIENT
  Age: 46 Year

DRUGS (2)
  1. INTERFERON ALFA-2B INJECTABLE LIKE INTRON A [Suspect]
     Indication: MALIGNANT MELANOMA
     Dosage: SEE IMAGE
     Route: 058
  2. RADIATION THERAPY NO DOSE FORM [Suspect]
     Indication: MALIGNANT MELANOMA
     Dosage: 2.4 GY X-RAY THERAPY

REACTIONS (7)
  - DIARRHOEA [None]
  - DRUG TOXICITY [None]
  - ERYTHEMA [None]
  - SEROMA [None]
  - SKIN ATROPHY [None]
  - SKIN DESQUAMATION [None]
  - TELANGIECTASIA [None]
